FAERS Safety Report 8497739-8 (Version None)
Quarter: 2012Q3

REPORT INFORMATION
  Report Type: 
  Country: None (occurrence: None)
  Receive Date: 20120709
  Receipt Date: 20120606
  Transmission Date: 20120928
  Serious: No
  Sender: FDA-Public Use
  Company Number: US-AMGEN-USASP2012034675

PATIENT
  Age: 39 Year
  Sex: Male
  Weight: 80.726 kg

DRUGS (12)
  1. DICLOFENAC SODIUM [Concomitant]
     Dosage: 75 MG, BID
     Route: 048
     Dates: start: 20120525, end: 20120525
  2. GARLIC                             /01570501/ [Concomitant]
     Dosage: 1000 MG, QD
     Dates: start: 20120525
  3. HYDROCODONE/ACETAMINOPHEN          /00607101/ [Concomitant]
     Dosage: 5 MG- 500MG , Q6H
     Route: 048
     Dates: start: 20120525
  4. IBUPROFEN [Concomitant]
     Dosage: 200 MG, Q6H
     Dates: start: 20120525
  5. ZOLPIDEM [Concomitant]
     Dosage: 12.5 MG, QD
     Route: 048
     Dates: start: 20120525
  6. SOMA [Concomitant]
     Dosage: 350 MG, TID
     Route: 048
     Dates: start: 20120525
  7. CITALOPRAM HYDROBROMIDE [Concomitant]
     Dosage: 20 MG, QD
     Route: 048
     Dates: start: 20120525
  8. FOLIC ACID [Concomitant]
     Dosage: 1 MG, QD
     Route: 048
     Dates: start: 20120525
  9. GINGER                             /01646602/ [Concomitant]
     Dosage: ONCE DAILY
     Dates: start: 20120525
  10. HUMIRA [Concomitant]
     Dosage: 40 MG, Q2WK
     Route: 058
     Dates: start: 20120525
  11. ENBREL [Suspect]
     Indication: RHEUMATOID ARTHRITIS
     Dosage: 50 MG, QWK
     Route: 058
     Dates: start: 20120525
  12. METHOTREXATE [Concomitant]
     Dosage: 20 MG, QWK
     Route: 048
     Dates: start: 20120525

REACTIONS (2)
  - INJECTION SITE ERYTHEMA [None]
  - INJECTION SITE ANAESTHESIA [None]
